FAERS Safety Report 14552779 (Version 1)
Quarter: 2018Q1

REPORT INFORMATION
  Report Type: Report from Study
  Country: CA (occurrence: CA)
  Receive Date: 20180220
  Receipt Date: 20180220
  Transmission Date: 20180509
  Serious: Yes (Other)
  Sender: FDA-Public Use
  Company Number: CA-JNJFOC-20171226441

PATIENT
  Age: 30 Year
  Sex: Male
  Weight: 74.39 kg

DRUGS (4)
  1. SIMPONI [Suspect]
     Active Substance: GOLIMUMAB
     Indication: ANKYLOSING SPONDYLITIS
     Route: 058
     Dates: start: 20180123
  2. SIMPONI [Suspect]
     Active Substance: GOLIMUMAB
     Indication: CROHN^S DISEASE
     Dosage: STRENGTH = 50 MG
     Route: 058
     Dates: start: 20170106
  3. SIMPONI [Suspect]
     Active Substance: GOLIMUMAB
     Indication: ANKYLOSING SPONDYLITIS
     Dosage: STRENGTH = 50 MG
     Route: 058
     Dates: start: 20170106
  4. SIMPONI [Suspect]
     Active Substance: GOLIMUMAB
     Indication: CROHN^S DISEASE
     Route: 058
     Dates: start: 20180123

REACTIONS (4)
  - Wound infection [Recovering/Resolving]
  - Concussion [Recovering/Resolving]
  - Fall [Recovering/Resolving]
  - Wound [Recovering/Resolving]

NARRATIVE: CASE EVENT DATE: 201712
